FAERS Safety Report 8488004-3 (Version None)
Quarter: 2012Q3

REPORT INFORMATION
  Report Type: 
  Country: None (occurrence: None)
  Receive Date: 20120705
  Receipt Date: 20120629
  Transmission Date: 20120928
  Serious: Yes (Other)
  Sender: FDA-Public Use
  Company Number: PHHY2012CH056395

PATIENT
  Age: 69 Year
  Sex: Female

DRUGS (6)
  1. ASPIRIN [Suspect]
  2. PRAVASTATIN [Suspect]
  3. TORSEMIDE [Suspect]
  4. SPIRONOLACTONE [Suspect]
  5. METOPROLOL SUCCINATE [Suspect]
  6. FLUPENTIXOL [Concomitant]

REACTIONS (3)
  - VENTRICULAR TACHYCARDIA [None]
  - OEDEMA PERIPHERAL [None]
  - ARTHRALGIA [None]
